FAERS Safety Report 10068335 (Version 1)
Quarter: 2014Q2

REPORT INFORMATION
  Report Type: Spontaneous
  Country: US (occurrence: US)
  Receive Date: 20140409
  Receipt Date: 20140409
  Transmission Date: 20141212
  Serious: No
  Sender: FDA-Public Use
  Company Number: US-BAUSCH-BL-2014-000279

PATIENT
  Sex: Female

DRUGS (1)
  1. LATANOPROST OPHTHALMIC SOLUTION 0.005% [Suspect]
     Indication: GLAUCOMA
     Dosage: ONE DROP TO EACH EYE AT BEDTIME
     Route: 047
     Dates: start: 201303

REACTIONS (4)
  - Pruritus [Unknown]
  - Eye pruritus [Unknown]
  - Sneezing [Unknown]
  - Cough [Unknown]
